FAERS Safety Report 9931883 (Version 2)
Quarter: 2014Q2

REPORT INFORMATION
  Report Type: Spontaneous
  Country: PL (occurrence: PL)
  Receive Date: 20140228
  Receipt Date: 20140502
  Transmission Date: 20141212
  Serious: Yes (Death)
  Sender: FDA-Public Use
  Company Number: PL-ASTELLAS-2014US001972

PATIENT
  Age: 71 Year
  Sex: Female

DRUGS (2)
  1. TARCEVA [Suspect]
     Indication: NON-SMALL CELL LUNG CANCER
     Route: 048
     Dates: start: 20131030, end: 20140227
  2. DEPAKINE CHRONO [Concomitant]
     Indication: PRODUCT USED FOR UNKNOWN INDICATION
     Route: 048
     Dates: start: 20140220, end: 20140323

REACTIONS (3)
  - Encephalitis [Fatal]
  - Respiratory tract infection [Unknown]
  - Diarrhoea [Unknown]
